FAERS Safety Report 10802324 (Version 1)
Quarter: 2015Q1

REPORT INFORMATION
  Report Type: Spontaneous
  Country: BR (occurrence: BR)
  Receive Date: 20150217
  Receipt Date: 20150217
  Transmission Date: 20150721
  Serious: Yes (Hospitalization, Other)
  Sender: FDA-Public Use
  Company Number: BR-TEVA-540799ISR

PATIENT
  Age: 63 Year
  Sex: Female
  Weight: 70 kg

DRUGS (5)
  1. PANTOPRAZOLE [Concomitant]
     Active Substance: PANTOPRAZOLE SODIUM
     Route: 048
  2. BROMOPRIDE [Concomitant]
     Active Substance: BROMOPRIDE
     Route: 048
  3. DRAMAMINE [Concomitant]
     Active Substance: DIMENHYDRINATE
  4. DECADRON [Concomitant]
     Active Substance: DEXAMETHASONE
     Route: 048
  5. TEVAOXALI [Suspect]
     Active Substance: OXALIPLATIN
     Indication: PANCREATIC CARCINOMA
     Route: 042
     Dates: start: 20140903

REACTIONS (3)
  - Pancytopenia [Recovered/Resolved]
  - Pain [Recovered/Resolved]
  - Abdominal distension [Recovered/Resolved]

NARRATIVE: CASE EVENT DATE: 20141220
